FAERS Safety Report 9118421 (Version 1)
Quarter: 2013Q1

REPORT INFORMATION
  Report Type: Spontaneous
  Country: US (occurrence: US)
  Receive Date: 20130219
  Receipt Date: 20130219
  Transmission Date: 20140127
  Serious: No
  Sender: FDA-Public Use
  Company Number: US-BRISTOL-MYERS SQUIBB COMPANY-17160664

PATIENT
  Age: 60 Year
  Sex: Female
  Weight: 76.19 kg

DRUGS (1)
  1. ORENCIA FOR INJ 250 MG/VIAL [Suspect]
     Indication: RHEUMATOID ARTHRITIS
     Dosage: LAST INFUSION WAS ON 07NOV2012
     Route: 042

REACTIONS (3)
  - Nasopharyngitis [Unknown]
  - Weight increased [Unknown]
  - Drug ineffective [Unknown]
